FAERS Safety Report 12705217 (Version 1)
Quarter: 2016Q3

REPORT INFORMATION
  Report Type: Spontaneous
  Country: US (occurrence: None)
  Receive Date: 20160831
  Receipt Date: 20160831
  Transmission Date: 20161109
  Serious: No
  Sender: FDA-Public Use
  Company Number: None

PATIENT
  Age: 34 Year
  Sex: Female
  Weight: 58.97 kg

DRUGS (7)
  1. LISINOPRIL. [Suspect]
     Active Substance: LISINOPRIL
     Indication: PROPHYLAXIS
     Route: 048
     Dates: start: 20160822, end: 20160829
  2. SYNTHROID [Concomitant]
     Active Substance: LEVOTHYROXINE SODIUM
  3. BIOCLEANSE [Concomitant]
  4. INSULIN - HUMALOG + LANTUS [Concomitant]
  5. MIRENA [Concomitant]
     Active Substance: LEVONORGESTREL
  6. ALEVE OR GOODIE POWDER [Concomitant]
  7. PLEXUS BLOCK [Concomitant]

REACTIONS (15)
  - Cough [None]
  - Dizziness [None]
  - Nasopharyngitis [None]
  - Insomnia [None]
  - Decreased appetite [None]
  - Oropharyngeal pain [None]
  - Palpitations [None]
  - Pain [None]
  - Asthenia [None]
  - Hypoaesthesia [None]
  - Malaise [None]
  - Rhinorrhoea [None]
  - Abdominal pain upper [None]
  - Chills [None]
  - Blood pressure increased [None]

NARRATIVE: CASE EVENT DATE: 20160822
